FAERS Safety Report 9399038 (Version 1)
Quarter: 2013Q3

REPORT INFORMATION
  Report Type: Spontaneous
  Country: GB (occurrence: GB)
  Receive Date: 20130715
  Receipt Date: 20130715
  Transmission Date: 20140515
  Serious: Yes (Other)
  Sender: FDA-Public Use
  Company Number: GB-JNJFOC-20130708066

PATIENT
  Age: 4 Year
  Sex: Male

DRUGS (2)
  1. CALPOL [Suspect]
     Indication: PYREXIA
     Route: 065
  2. NUROFEN [Suspect]
     Indication: PYREXIA
     Route: 048

REACTIONS (4)
  - Delirium [Unknown]
  - Confusional state [Unknown]
  - Pyrexia [Unknown]
  - Sudden onset of sleep [Unknown]
